FAERS Safety Report 8271036 (Version 3)
Quarter: 2013Q1

REPORT INFORMATION
  Report Type: Report from Study
  Country: US (occurrence: US)
  Receive Date: 20111201
  Receipt Date: 20130215
  Transmission Date: 20140127
  Serious: Yes (Hospitalization)
  Sender: FDA-Public Use
  Company Number: US-ACTELION-A-US2010-34411

PATIENT
  Age: 50 Year
  Sex: Female

DRUGS (5)
  1. TRACLEER [Suspect]
     Indication: PULMONARY ARTERIAL HYPERTENSION
     Dosage: UNK MG, UNK
     Route: 048
     Dates: start: 20090713
  2. TRACLEER [Suspect]
     Dosage: UNK
     Route: 048
  3. REVATIO [Concomitant]
  4. CALCIUM CHANNEL BLOCKERS [Concomitant]
  5. ERYTHROMYCIN [Concomitant]

REACTIONS (6)
  - Infection [Recovering/Resolving]
  - Chronic obstructive pulmonary disease [Recovering/Resolving]
  - Dyspnoea [Recovering/Resolving]
  - Pulmonary hypertension [Recovering/Resolving]
  - Feeling cold [Unknown]
  - Hot flush [Unknown]
